FAERS Safety Report 5032830-X (Version None)
Quarter: 2006Q2

REPORT INFORMATION
  Report Type: 
  Country: None (occurrence: None)
  Receive Date: 20060620
  Receipt Date: 20060606
  Transmission Date: 20061013
  Serious: Yes (Hospitalization)
  Sender: FDA-Public Use
  Company Number: 2006BI007042

PATIENT
  Age: 61 Year
  Sex: Male

DRUGS (9)
  1. AVONEX [Suspect]
     Indication: MULTIPLE SCLEROSIS
     Dosage: 30 UG; QW; IM
     Route: 030
     Dates: start: 20010101, end: 20030701
  2. AVONEX [Suspect]
     Indication: MULTIPLE SCLEROSIS
     Dosage: 30 UG; QW; IM
     Route: 030
     Dates: start: 20030801, end: 20060501
  3. CARDIZEM [Concomitant]
  4. LISINOPRIL [Concomitant]
  5. GARLIC [Concomitant]
  6. M.V.I. [Concomitant]
  7. VITAMIN E [Concomitant]
  8. BACLOFEN [Concomitant]
  9. HYDROCHLOROTHIAZIDE [Concomitant]

REACTIONS (3)
  - NECROSIS [None]
  - PANCREATITIS [None]
  - PSEUDOCYST [None]
